FAERS Safety Report 13261486 (Version 1)
Quarter: 2017Q1

REPORT INFORMATION
  Report Type: Spontaneous
  Country: US (occurrence: US)
  Receive Date: 20170222
  Receipt Date: 20170222
  Transmission Date: 20170428
  Serious: No
  Sender: FDA-Public Use
  Company Number: US-LANTHEUS-LMI-2016-00520

PATIENT
  Age: 81 Year
  Sex: Female
  Weight: 66 kg

DRUGS (2)
  1. DEFINITY [Suspect]
     Active Substance: PERFLUTREN
     Indication: STRESS ECHOCARDIOGRAM
     Dosage: 2 ML, SINGLE
     Route: 040
     Dates: start: 20160630, end: 20160630
  2. DEFINITY [Suspect]
     Active Substance: PERFLUTREN
     Dosage: 2 ML, SINGLE
     Route: 040
     Dates: start: 20160630, end: 20160630

REACTIONS (2)
  - Axillary mass [Not Recovered/Not Resolved]
  - Axillary pain [Not Recovered/Not Resolved]

NARRATIVE: CASE EVENT DATE: 20160701
